FAERS Safety Report 18877377 (Version 3)
Quarter: 2021Q3

REPORT INFORMATION
  Report Type: Report from Study
  Country: JP (occurrence: JP)
  Receive Date: 20210211
  Receipt Date: 20210701
  Transmission Date: 20211014
  Serious: Yes (Death, Life-Threatening, Other)
  Sender: FDA-Public Use
  Company Number: JP-RECORDATI RARE DISEASES INC.-2019010483

PATIENT
  Age: 7 Day
  Sex: Female
  Weight: .52 kg

DRUGS (13)
  1. NEOPROFEN [Suspect]
     Active Substance: IBUPROFEN LYSINE
     Indication: PATENT DUCTUS ARTERIOSUS
     Dosage: 5 MILLIGRAM, QD
     Route: 042
     Dates: start: 20190430, end: 20190430
  2. INOVAN [DOPAMINE HYDROCHLORIDE] [Concomitant]
     Indication: PRODUCT USED FOR UNKNOWN INDICATION
     Dosage: UNKNOWN
     Route: 065
     Dates: start: 20190426, end: 20190613
  3. KAYTWO N [Concomitant]
     Active Substance: MENATETRENONE
     Indication: PRODUCT USED FOR UNKNOWN INDICATION
     Dosage: UNKNOWN
     Route: 065
     Dates: start: 20190425, end: 20190611
  4. VITAJECT [CYANOCOBALAMIN;PYRIDOXINE HYDROCHLORIDE;THIAMINE HYDROCHLORI [Concomitant]
     Indication: PRODUCT USED FOR UNKNOWN INDICATION
     Dosage: UNKNOWN
     Route: 065
     Dates: start: 20190425, end: 20190613
  5. GASTER [Concomitant]
     Active Substance: FAMOTIDINE
     Indication: PRODUCT USED FOR UNKNOWN INDICATION
     Dosage: UNKNOWN
     Route: 065
     Dates: start: 20190428, end: 20190501
  6. CALCICOL [Concomitant]
     Active Substance: CALCIUM GLUCONATE
     Indication: PRODUCT USED FOR UNKNOWN INDICATION
     Dosage: UNKNOWN
     Route: 065
     Dates: start: 20190425, end: 20190515
  7. FLUTIDE [FLUTICASONE PROPIONATE] [Concomitant]
     Active Substance: FLUTICASONE PROPIONATE
     Indication: PRODUCT USED FOR UNKNOWN INDICATION
     Dosage: UNKNOWN
     Route: 065
     Dates: start: 20190430, end: 20190501
  8. PLEAMIN P [Concomitant]
     Indication: PRODUCT USED FOR UNKNOWN INDICATION
     Dosage: UNKNOWN
     Route: 065
     Dates: start: 20190425, end: 20190613
  9. SOLU?CORTEF [Concomitant]
     Active Substance: HYDROCORTISONE SODIUM SUCCINATE
     Indication: PRODUCT USED FOR UNKNOWN INDICATION
     Dosage: UNKNOWN
     Route: 065
     Dates: start: 20190426, end: 20190611
  10. PRODIF [Concomitant]
     Active Substance: FOSFLUCONAZOLE
     Indication: PRODUCT USED FOR UNKNOWN INDICATION
     Dosage: UNKNOWN
     Route: 042
     Dates: start: 20190428, end: 20190610
  11. RESPIA [Concomitant]
     Active Substance: CAFFEINE
     Indication: PRODUCT USED FOR UNKNOWN INDICATION
     Dosage: UNKNOWN
     Route: 065
     Dates: start: 20190430, end: 20190501
  12. SODIUM PHOSPHATE [Concomitant]
     Active Substance: SODIUM PHOSPHATE
     Indication: PRODUCT USED FOR UNKNOWN INDICATION
     Dosage: UNKNOWN
     Route: 065
     Dates: start: 20190426, end: 20190613
  13. ELEMENMIC [Concomitant]
     Active Substance: CUPRIC SULFATE\FERRIC CHLORIDE\MANGANESE CHLORIDE\POTASSIUM IODIDE\ZINC SULFATE
     Indication: PRODUCT USED FOR UNKNOWN INDICATION
     Dosage: UNKNOWN
     Route: 065
     Dates: start: 20190425, end: 20190613

REACTIONS (5)
  - Multiple organ dysfunction syndrome [Fatal]
  - Bacteraemia [Recovered/Resolved]
  - Intraventricular haemorrhage [Unknown]
  - Disseminated intravascular coagulation [Unknown]
  - Pulmonary haemorrhage [Recovering/Resolving]

NARRATIVE: CASE EVENT DATE: 20190501
